FAERS Safety Report 13855515 (Version 1)
Quarter: 2017Q3

REPORT INFORMATION
  Report Type: Spontaneous
  Country: CA (occurrence: CA)
  Receive Date: 20170810
  Receipt Date: 20170810
  Transmission Date: 20171127
  Serious: Yes (Life-Threatening, Other)
  Sender: FDA-Public Use
  Company Number: CA-GLENMARK PHARMACEUTICALS-2017GMK028423

PATIENT

DRUGS (1)
  1. LIDOCAINE. [Suspect]
     Active Substance: LIDOCAINE
     Indication: CEREBROSPINAL FLUID LEAKAGE
     Dosage: INFILTRATION
     Route: 065

REACTIONS (2)
  - Respiratory failure [Unknown]
  - Anaesthetic complication neurological [Unknown]
